FAERS Safety Report 25659319 (Version 1)
Quarter: 2025Q3

REPORT INFORMATION
  Report Type: Spontaneous
  Country: EU (occurrence: EU)
  Receive Date: 20250808
  Receipt Date: 20250808
  Transmission Date: 20251020
  Serious: Yes (Hospitalization)
  Sender: ABBVIE
  Company Number: None

PATIENT
  Age: 43 Year
  Sex: Male
  Weight: 90.9 kg

DRUGS (2)
  1. RINVOQ [Suspect]
     Active Substance: UPADACITINIB
     Indication: SAPHO syndrome
     Route: 048
     Dates: start: 20250307, end: 20250409
  2. RINVOQ [Suspect]
     Active Substance: UPADACITINIB
     Indication: SAPHO syndrome
     Route: 048
     Dates: start: 20250409, end: 20250526

REACTIONS (1)
  - Appendicitis [Recovering/Resolving]

NARRATIVE: CASE EVENT DATE: 20250528
